FAERS Safety Report 5859373-5 (Version None)
Quarter: 2008Q3

REPORT INFORMATION
  Report Type: 
  Country: None (occurrence: None)
  Receive Date: 20080827
  Receipt Date: 20080821
  Transmission Date: 20090109
  Serious: Yes (Other)
  Sender: FDA-Public Use
  Company Number: US-BAYER-200813033BCC

PATIENT
  Age: 71 Year
  Sex: Female
  Weight: 77 kg

DRUGS (8)
  1. ASPIRIN [Suspect]
     Indication: ISCHAEMIC HEART DISEASE PROPHYLAXIS
     Dosage: TOTAL DAILY DOSE: 81 MG  UNIT DOSE: 81 MG
     Route: 048
     Dates: end: 20060616
  2. ASPIRIN [Suspect]
     Dosage: TOTAL DAILY DOSE: 243 MG  UNIT DOSE: 81 MG
     Route: 048
     Dates: start: 20060616
  3. ASPIRIN [Suspect]
     Dosage: TOTAL DAILY DOSE: 243 MG  UNIT DOSE: 81 MG
     Route: 048
     Dates: start: 19950101, end: 20080101
  4. LOTREL [Concomitant]
  5. TENORMIN [Concomitant]
  6. FUROSEMIDE [Concomitant]
  7. POTASSIUM CHLORIDE [Concomitant]
  8. SIMVASTATIN [Concomitant]

REACTIONS (3)
  - CONTUSION [None]
  - PAIN IN EXTREMITY [None]
  - THROMBOSIS [None]
